FAERS Safety Report 19991504 (Version 1)
Quarter: 2021Q4

REPORT INFORMATION
  Report Type: Spontaneous
  Country: AU (occurrence: AU)
  Receive Date: 20211025
  Receipt Date: 20211025
  Transmission Date: 20220303
  Serious: Yes (Hospitalization)
  Sender: FDA-Public Use
  Company Number: AU-AMERICAN REGENT INC-2021002737

PATIENT
  Age: 32 Year
  Sex: Female

DRUGS (1)
  1. FERINJECT [Suspect]
     Active Substance: FERRIC CARBOXYMALTOSE
     Indication: Product used for unknown indication
     Dosage: 1 GM

REACTIONS (4)
  - Malaise [Recovered/Resolved]
  - Infusion site bruising [Recovered/Resolved]
  - Infusion site extravasation [Recovering/Resolving]
  - Infusion site swelling [Recovered/Resolved]
